FAERS Safety Report 25268696 (Version 3)
Quarter: 2025Q4

REPORT INFORMATION
  Report Type: Spontaneous
  Country: US (occurrence: US)
  Receive Date: 20250505
  Receipt Date: 20251014
  Transmission Date: 20260117
  Serious: Yes (Death, Hospitalization, Other)
  Sender: MDD OPERATIONS
  Company Number: US-MDD US Operations-MDD202503-000716

PATIENT
  Age: 87 Year
  Sex: Female

DRUGS (10)
  1. APOKYN [Suspect]
     Active Substance: APOMORPHINE HYDROCHLORIDE
     Indication: Parkinson^s disease
     Route: 058
     Dates: start: 202401, end: 20250221
  2. APOKYN [Suspect]
     Active Substance: APOMORPHINE HYDROCHLORIDE
     Dosage: 30MG/3ML
  3. APOKYN [Suspect]
     Active Substance: APOMORPHINE HYDROCHLORIDE
     Dosage: 1-2 TIMES PER DAY
  4. LEVOTHYROXINE [Concomitant]
     Active Substance: LEVOTHYROXINE
     Indication: Blood pressure measurement
     Dosage: NOT PROVIDED
  5. CARBIDOPA\LEVODOPA [Concomitant]
     Active Substance: CARBIDOPA\LEVODOPA
     Indication: Parkinson^s disease
     Dosage: NOT PROVIDED
  6. VITAMIN D [Concomitant]
     Active Substance: VITAMIN D NOS
     Dosage: NOT PROVIDED
  7. FOLIC ACID [Concomitant]
     Active Substance: FOLIC ACID
     Dosage: NOT PROVIDED
  8. CALCIUM CARBONATE [Concomitant]
     Active Substance: CALCIUM CARBONATE
     Dosage: NOT PROVIDED
  9. LEXAPRO [Concomitant]
     Active Substance: ESCITALOPRAM OXALATE
     Dosage: NOT PROVIDED
  10. ASPIRIN [Concomitant]
     Active Substance: ASPIRIN
     Dosage: NOT PROVIDED

REACTIONS (3)
  - Death [Fatal]
  - Dementia [Not Recovered/Not Resolved]
  - Dyspnoea [Recovering/Resolving]

NARRATIVE: CASE EVENT DATE: 20250222
